FAERS Safety Report 5028981-6 (Version None)
Quarter: 2006Q2

REPORT INFORMATION
  Report Type: 
  Country: None (occurrence: None)
  Receive Date: 20060619
  Receipt Date: 20060608
  Transmission Date: 20061013
  Serious: Yes (Death, Hospitalization)
  Sender: FDA-Public Use
  Company Number: US-SANOFI-SYNTHELABO-A03200603718

PATIENT
  Sex: Female

DRUGS (1)
  1. PLAVIX [Suspect]
     Indication: DRUG USE FOR UNKNOWN INDICATION
     Dosage: UNK
     Route: 048

REACTIONS (11)
  - ACUTE RESPIRATORY DISTRESS SYNDROME [None]
  - DIFFUSE ALVEOLAR DAMAGE [None]
  - HYPOTENSION [None]
  - INTERSTITIAL LUNG DISEASE [None]
  - NEUTROPENIA [None]
  - PNEUMONIA [None]
  - PNEUMOTHORAX [None]
  - PSEUDOMONAS INFECTION [None]
  - RESPIRATORY FAILURE [None]
  - SEPSIS SYNDROME [None]
  - SUBCUTANEOUS EMPHYSEMA [None]
